FAERS Safety Report 5715860-1 (Version None)
Quarter: 2008Q2

REPORT INFORMATION
  Report Type: 
  Country: None (occurrence: None)
  Receive Date: 20080424
  Receipt Date: 20080422
  Transmission Date: 20081010
  Serious: Yes (Hospitalization)
  Sender: FDA-Public Use
  Company Number: ES-WYE-G01447108

PATIENT
  Age: 73 Year
  Sex: Male

DRUGS (1)
  1. TAZOCEL [Suspect]
     Indication: NOSOCOMIAL INFECTION
     Route: 042
     Dates: start: 20080131, end: 20080207

REACTIONS (3)
  - BICYTOPENIA [None]
  - LEUKOPENIA [None]
  - THROMBOCYTOPENIA [None]
